FAERS Safety Report 6985601-9 (Version None)
Quarter: 2010Q3

REPORT INFORMATION
  Report Type: 
  Country: None (occurrence: None)
  Receive Date: 20100915
  Receipt Date: 20100907
  Transmission Date: 20110219
  Serious: Yes (Life-Threatening, Other)
  Sender: FDA-Public Use
  Company Number: JP-JNJFOC-20100109403

PATIENT
  Sex: Female
  Weight: 45 kg

DRUGS (10)
  1. RISPERDAL CONSTA [Suspect]
     Indication: SCHIZOPHRENIA
     Route: 030
  2. RISPERDAL [Suspect]
     Indication: SCHIZOPHRENIA
     Route: 048
  3. RISPERDAL [Suspect]
     Route: 048
  4. RISPERDAL [Suspect]
     Route: 048
  5. RISPERDAL [Suspect]
     Route: 048
  6. GASMOTIN [Concomitant]
     Indication: CONSTIPATION
     Route: 048
  7. DAI-KENCHU-TO [Concomitant]
     Route: 048
  8. YODEL [Concomitant]
     Indication: CONSTIPATION
     Route: 048
  9. ROHYPNOL [Concomitant]
     Indication: INSOMNIA
     Route: 048
  10. SENNOSIDE [Concomitant]
     Indication: CONSTIPATION
     Route: 048

REACTIONS (12)
  - ABDOMINAL PAIN [None]
  - AKATHISIA [None]
  - ASCITES [None]
  - CARDIAC FAILURE [None]
  - CARDIAC HYPERTROPHY [None]
  - DECREASED APPETITE [None]
  - INAPPROPRIATE SCHEDULE OF DRUG ADMINISTRATION [None]
  - PLEURAL EFFUSION [None]
  - PNEUMONIA [None]
  - PRURITUS [None]
  - PSYCHIATRIC SYMPTOM [None]
  - SUBILEUS [None]
